FAERS Safety Report 11551436 (Version 2)
Quarter: 2015Q3

REPORT INFORMATION
  Report Type: Report from Study
  Country: IL (occurrence: IL)
  Receive Date: 20150925
  Receipt Date: 20150930
  Transmission Date: 20151125
  Serious: Yes (Hospitalization)
  Sender: FDA-Public Use
  Company Number: IL-AMGEN-ISRCT2015098074

PATIENT
  Age: 36 Year
  Sex: Male
  Weight: 60 kg

DRUGS (2)
  1. BLINATUMOMAB [Suspect]
     Active Substance: BLINATUMOMAB
     Indication: ACUTE LYMPHOCYTIC LEUKAEMIA
     Dosage: 28 MCG, UNK
     Route: 041
     Dates: start: 20150902
  2. DEXAMETHASONE. [Concomitant]
     Active Substance: DEXAMETHASONE
     Dosage: 10-20 MG, UNK
     Dates: start: 20150902, end: 20150909

REACTIONS (1)
  - Cerebral fungal infection [Not Recovered/Not Resolved]

NARRATIVE: CASE EVENT DATE: 20150920
